FAERS Safety Report 8919814 (Version 1)
Quarter: 2012Q4

REPORT INFORMATION
  Report Type: 
  Country: US (occurrence: US)
  Receive Date: 20121121
  Receipt Date: 20121121
  Transmission Date: 20130627
  Serious: Yes (Other)
  Sender: FDA-Public Use
  Company Number: US-SANOFI-AVENTIS-2012SA082748

PATIENT

DRUGS (2)
  1. AUBAGIO [Suspect]
     Route: 048
     Dates: start: 20121101, end: 20121101
  2. AUBAGIO [Suspect]
     Route: 048
     Dates: start: 20121106

REACTIONS (1)
  - Convulsion [Recovered/Resolved]
